FAERS Safety Report 6880186-X (Version None)
Quarter: 2010Q3

REPORT INFORMATION
  Report Type: 
  Country: None (occurrence: None)
  Receive Date: 20100728
  Receipt Date: 20100511
  Transmission Date: 20110219
  Serious: No
  Sender: FDA-Public Use
  Company Number: US-BRISTOL-MYERS SQUIBB COMPANY-15058597

PATIENT
  Age: 68 Year
  Sex: Female
  Weight: 55 kg

DRUGS (10)
  1. SPRYCEL [Suspect]
     Indication: CHRONIC MYELOID LEUKAEMIA
  2. NEXIUM [Concomitant]
     Dates: start: 20091101
  3. THYROID TAB [Concomitant]
  4. POTASSIUM [Concomitant]
  5. ZOLOFT [Concomitant]
  6. PROVIGIL [Concomitant]
  7. BUMEX [Concomitant]
  8. AMBIEN CR [Concomitant]
  9. TRAZODONE HCL [Concomitant]
  10. PERCOCET [Concomitant]

REACTIONS (1)
  - MEDICATION ERROR [None]
